FAERS Safety Report 7264721-8 (Version None)
Quarter: 2011Q1

REPORT INFORMATION
  Report Type: 
  Country: None (occurrence: None)
  Receive Date: 20110131
  Receipt Date: 20110124
  Transmission Date: 20110831
  Serious: Yes (Hospitalization)
  Sender: FDA-Public Use
  Company Number: ES-JNJFOC-20110107316

PATIENT
  Age: 85 Year
  Sex: Male

DRUGS (9)
  1. AMARYL [Concomitant]
     Indication: ILL-DEFINED DISORDER
  2. PLAVIX [Concomitant]
     Indication: ILL-DEFINED DISORDER
  3. ENALAPRIL MALEATE [Concomitant]
     Indication: ILL-DEFINED DISORDER
  4. OMEPRAZOLE [Concomitant]
     Indication: ILL-DEFINED DISORDER
  5. FLUOXETINA [Suspect]
     Indication: DEPRESSION
     Route: 065
  6. ZOCOR [Concomitant]
     Indication: ILL-DEFINED DISORDER
  7. TROMALYT [Concomitant]
     Indication: ILL-DEFINED DISORDER
  8. DURAGESIC-100 [Suspect]
     Indication: PAIN
     Dosage: PATCH 12 UL/H
     Route: 062
  9. GLIMEPIRIDE [Suspect]
     Indication: PRODUCT USED FOR UNKNOWN INDICATION
     Route: 065

REACTIONS (5)
  - BRADYCARDIA [None]
  - SOMNOLENCE [None]
  - HYPOGLYCAEMIA [None]
  - HYPOPHAGIA [None]
  - DISORIENTATION [None]
